FAERS Safety Report 10219142 (Version 1)
Quarter: 2014Q2

REPORT INFORMATION
  Report Type: Spontaneous
  Country: US (occurrence: US)
  Receive Date: 20140605
  Receipt Date: 20140605
  Transmission Date: 20141212
  Serious: Yes (Other)
  Sender: FDA-Public Use
  Company Number: PHHY2014US067198

PATIENT
  Age: 18 Year
  Sex: Male

DRUGS (8)
  1. LIORESAL INTRATECAL [Suspect]
     Indication: MUSCLE SPASTICITY
     Dosage: 1800.2 UG, DAILY
     Dates: start: 20010824
  2. LIORESAL INTRATECAL [Suspect]
     Dosage: 12.2 UG, DAILY
  3. LIORESAL INTRATECAL [Suspect]
     Dosage: 239.9 UG,DAILY
     Dates: start: 20140416
  4. LIORESAL INTRATECAL [Suspect]
     Dosage: 288.3 UG,DAILY
     Dates: start: 20140502
  5. LIORESAL INTRATECAL [Suspect]
     Dosage: 415.5 UG, DAILY
     Dates: start: 20140508
  6. LIORESAL INTRATECAL [Suspect]
     Dosage: 499.4 UG, DAILY
     Dates: start: 20140514
  7. LEVETIRACETAM [Suspect]
     Dosage: UNK UKN, BID
     Route: 048
  8. MIRALAX [Suspect]
     Dosage: 17 G, DAILY

REACTIONS (1)
  - Muscle spasticity [Unknown]
